FAERS Safety Report 18820340 (Version 1)
Quarter: 2021Q1

REPORT INFORMATION
  Report Type: Spontaneous
  Country: US (occurrence: US)
  Receive Date: 20210201
  Receipt Date: 20210201
  Transmission Date: 20210419
  Serious: No
  Sender: FDA-Public Use
  Company Number: None

PATIENT
  Age: 74 Year
  Sex: Female
  Weight: 67.5 kg

DRUGS (19)
  1. PREDNISOLONE. [Suspect]
     Active Substance: PREDNISOLONE
     Indication: CORNEAL TRANSPLANT
     Dosage: ?          QUANTITY:1 DROP(S);?
     Route: 047
  2. COENZYME Q10 [Concomitant]
     Active Substance: DIETARY SUPPLEMENT\UBIDECARENONE
  3. BRIMONIDIN [Concomitant]
  4. VITAMIN C [Concomitant]
     Active Substance: ASCORBIC ACID
  5. VITAMIN D3 [Concomitant]
     Active Substance: CHOLECALCIFEROL
  6. PRIMROSE [Concomitant]
  7. TURMERIC [Concomitant]
     Active Substance: HERBALS\TURMERIC
  8. CRANBERRY. [Concomitant]
     Active Substance: CRANBERRY
  9. VITAMIN B COMPLEX [Concomitant]
     Active Substance: CYANOCOBALAMIN\DEXPANTHENOL\NIACINAMIDE\PYRIDOXINE HYDROCHLORIDE\RIBOFLAVIN 5^-PHOSPHATE SODIUM\THIAMINE HYDROCHLORIDE\VITAMIN B COMPLEX
  10. SYNTHROID [Concomitant]
     Active Substance: LEVOTHYROXINE SODIUM
  11. GLUCOSAMINE CHONDROITIN [Concomitant]
     Active Substance: CHONDROITIN SULFATE (BOVINE)\GLUCOSAMINE HYDROCHLORIDE
  12. LUTEIN [Concomitant]
     Active Substance: LUTEIN
  13. TIMOLOL. [Concomitant]
     Active Substance: TIMOLOL
  14. GENTILE TEARS [Concomitant]
  15. MURO 128 [Concomitant]
     Active Substance: SODIUM CHLORIDE
  16. FISH OIL [Concomitant]
     Active Substance: FISH OIL
  17. FLAX SEED [Concomitant]
     Active Substance: FLAX SEED
  18. CATS CLAW BARK [Concomitant]
  19. MULTIVITAMIN [Concomitant]
     Active Substance: VITAMINS

REACTIONS (2)
  - Eye irritation [None]
  - Eye pain [None]

NARRATIVE: CASE EVENT DATE: 20210125
